FAERS Safety Report 17323832 (Version 2)
Quarter: 2020Q2

REPORT INFORMATION
  Report Type: Spontaneous
  Country: BR (occurrence: BR)
  Receive Date: 20200127
  Receipt Date: 20200519
  Transmission Date: 20200713
  Serious: Yes (Other)
  Sender: FDA-Public Use
  Company Number: BR-ROCHE-2530325

PATIENT
  Sex: Male

DRUGS (1)
  1. XOLAIR [Suspect]
     Active Substance: OMALIZUMAB
     Indication: CHRONIC SPONTANEOUS URTICARIA
     Dosage: 2 DF, QMO USING ONE EVERY 4 WEEKS
     Route: 065
     Dates: start: 201910, end: 201912

REACTIONS (5)
  - Asthma [Unknown]
  - Respiratory failure [Unknown]
  - Malaise [Unknown]
  - Blood immunoglobulin E increased [Unknown]
  - Drug ineffective [Unknown]

NARRATIVE: CASE EVENT DATE: 201910
